FAERS Safety Report 17915273 (Version 1)
Quarter: 2020Q2

REPORT INFORMATION
  Report Type: Spontaneous
  Country: CN (occurrence: CN)
  Receive Date: 20200619
  Receipt Date: 20200619
  Transmission Date: 20200714
  Serious: Yes (Hospitalization)
  Sender: FDA-Public Use
  Company Number: CN-B.I. PHARMACEUTICALS,INC./RIDGEFIELD-2020-BI-029652

PATIENT
  Age: 3 Month
  Sex: Female
  Weight: 10 kg

DRUGS (3)
  1. ATROVENT [Suspect]
     Active Substance: IPRATROPIUM BROMIDE
     Indication: RESPIRATORY DISORDER
     Dosage: FORM OF ADMIN: INHALATION SOLUTION
     Route: 055
     Dates: start: 20200524, end: 20200526
  2. GLUCOSE + SODIUM CHLORIDE [Suspect]
     Active Substance: DEXTROSE\SODIUM CHLORIDE
     Indication: VEHICLE SOLUTION USE
     Dosage: FORM OF ADMIN: INJECTION SOLUTION
     Route: 042
     Dates: start: 20200520, end: 20200528
  3. PULMICORT TURBUHALER [Suspect]
     Active Substance: BUDESONIDE
     Indication: RESPIRATORY DISORDER
     Dosage: FORM OF ADMIN: SUSPENSION SOLUTION
     Route: 055
     Dates: start: 20200524, end: 20200526

REACTIONS (1)
  - Hepatic function abnormal [Not Recovered/Not Resolved]

NARRATIVE: CASE EVENT DATE: 20200528
